FAERS Safety Report 19091251 (Version 1)
Quarter: 2021Q2

REPORT INFORMATION
  Report Type: Spontaneous
  Country: SE (occurrence: SE)
  Receive Date: 20210405
  Receipt Date: 20210405
  Transmission Date: 20210717
  Serious: Yes (Hospitalization)
  Sender: FDA-Public Use
  Company Number: SE-SUN PHARMACEUTICAL INDUSTRIES LTD-2021R1-288420

PATIENT
  Age: 54 Year
  Sex: Male

DRUGS (1)
  1. PARACETAMOL SUN [Suspect]
     Active Substance: ACETAMINOPHEN
     Indication: ANXIETY
     Dosage: 500 MILLIGRAM (100*500 MG WITHIN 2.5 HOUR)
     Route: 054

REACTIONS (3)
  - Anxiety [Unknown]
  - Nausea [Unknown]
  - Overdose [Unknown]
